FAERS Safety Report 13762586 (Version 1)
Quarter: 2017Q3

REPORT INFORMATION
  Report Type: Spontaneous
  Country: JP (occurrence: JP)
  Receive Date: 20170718
  Receipt Date: 20170718
  Transmission Date: 20171127
  Serious: Yes (Life-Threatening, Other)
  Sender: FDA-Public Use
  Company Number: JP-ACCORD-053671

PATIENT
  Age: 73 Year
  Sex: Male

DRUGS (2)
  1. CISPLATIN. [Suspect]
     Active Substance: CISPLATIN
     Indication: LUNG SQUAMOUS CELL CARCINOMA STAGE III
     Dosage: DAYS 1 AND 8
  2. DOCETAXEL. [Suspect]
     Active Substance: DOCETAXEL
     Indication: LUNG SQUAMOUS CELL CARCINOMA STAGE III
     Dosage: DAYS 1 AND 8

REACTIONS (3)
  - Oesophagobronchial fistula [Recovering/Resolving]
  - Tumour necrosis [Recovering/Resolving]
  - Mucous membrane disorder [Recovering/Resolving]
